FAERS Safety Report 26074203 (Version 1)
Quarter: 2025Q4

REPORT INFORMATION
  Report Type: Report from Study
  Country: US (occurrence: US)
  Receive Date: 20251121
  Receipt Date: 20251121
  Transmission Date: 20260117
  Serious: Yes (Hospitalization, Other)
  Sender: ROCHE
  Company Number: US-ROCHE-10000437587

PATIENT
  Age: 60 Year
  Sex: Female

DRUGS (2)
  1. ACTEMRA ACTPEN [Suspect]
     Active Substance: TOCILIZUMAB
     Indication: Systemic scleroderma
     Route: 058
     Dates: start: 202507
  2. CELLCEPT [Suspect]
     Active Substance: MYCOPHENOLATE MOFETIL
     Indication: Systemic scleroderma
     Route: 065
     Dates: start: 202502

REACTIONS (19)
  - Off label use [Unknown]
  - Cough [Unknown]
  - Dyspnoea [Unknown]
  - Arthralgia [Unknown]
  - Pneumonia [Unknown]
  - Swelling [Unknown]
  - Skin tightness [Unknown]
  - Leukopenia [Unknown]
  - Lymphadenopathy [Unknown]
  - Back pain [Unknown]
  - Neck pain [Unknown]
  - Night sweats [Unknown]
  - Pain in extremity [Unknown]
  - Rash [Unknown]
  - Chest discomfort [Unknown]
  - Sinusitis [Unknown]
  - Staphylococcal infection [Unknown]
  - Skin ulcer [Unknown]
  - Arthralgia [Unknown]
